FAERS Safety Report 6190068-7 (Version None)
Quarter: 2009Q2

REPORT INFORMATION
  Report Type: 
  Country: None (occurrence: None)
  Receive Date: 20090513
  Receipt Date: 20090513
  Transmission Date: 20091009
  Serious: Yes (Other)
  Sender: FDA-Public Use
  Company Number: None

PATIENT
  Age: 63 Year
  Sex: Female
  Weight: 73.0291 kg

DRUGS (1)
  1. MOBIC [Suspect]
     Indication: OSTEOARTHRITIS
     Dosage: 1 DAILY PO
     Route: 048
     Dates: start: 20090413, end: 20090508

REACTIONS (1)
  - ALOPECIA [None]
